FAERS Safety Report 10219974 (Version 1)
Quarter: 2014Q2

REPORT INFORMATION
  Report Type: Spontaneous
  Country: US (occurrence: US)
  Receive Date: 20140605
  Receipt Date: 20140605
  Transmission Date: 20141212
  Serious: No
  Sender: FDA-Public Use
  Company Number: US-GILEAD-2014-0103945

PATIENT
  Age: 50 Year
  Sex: Male

DRUGS (2)
  1. SOVALDI [Suspect]
     Indication: PRODUCT USED FOR UNKNOWN INDICATION
     Dosage: UNK
     Dates: start: 20140122
  2. RIBAPAK [Concomitant]
     Dosage: UNK
     Dates: start: 20140122

REACTIONS (2)
  - Skin ulcer [Unknown]
  - Rash [Unknown]
